FAERS Safety Report 12155183 (Version 1)
Quarter: 2016Q1

REPORT INFORMATION
  Report Type: Spontaneous
  Country: US (occurrence: US)
  Receive Date: 20160307
  Receipt Date: 20160307
  Transmission Date: 20160526
  Serious: Yes (Hospitalization)
  Sender: FDA-Public Use
  Company Number: US-FRESENIUS KABI-FK201601143

PATIENT
  Sex: Female

DRUGS (7)
  1. OMEPRAZOLE. [Suspect]
     Active Substance: OMEPRAZOLE
     Indication: DERMATITIS ATOPIC
     Route: 048
     Dates: start: 20151216, end: 20151216
  2. CAFFEINE CITRATE (MANUFACTURER UNKNOWN) (CAFFEINE CITRATE) (CAFFEINE CITRATE) [Suspect]
     Active Substance: CAFFEINE CITRATE
     Indication: DERMATITIS ATOPIC
     Route: 048
     Dates: start: 20151216, end: 20151216
  3. WARFARIN [Suspect]
     Active Substance: WARFARIN
     Indication: DERMATITIS ATOPIC
     Route: 048
     Dates: start: 20151216, end: 20151216
  4. DUPILUMAB [Suspect]
     Active Substance: DUPILUMAB
     Route: 058
     Dates: start: 20151230
  5. MIDAZOLAM [Suspect]
     Active Substance: MIDAZOLAM\MIDAZOLAM HYDROCHLORIDE
     Indication: DERMATITIS ATOPIC
     Route: 048
     Dates: start: 20151216, end: 20151216
  6. METOPROLOL. [Suspect]
     Active Substance: METOPROLOL
     Indication: DERMATITIS ATOPIC
     Route: 048
     Dates: start: 20151216, end: 20151216
  7. DUPILUMAB [Suspect]
     Active Substance: DUPILUMAB
     Indication: DERMATITIS ATOPIC
     Route: 058
     Dates: start: 20151223, end: 20151223

REACTIONS (1)
  - Sepsis [Unknown]

NARRATIVE: CASE EVENT DATE: 20160107
